FAERS Safety Report 19647876 (Version 1)
Quarter: 2021Q3

REPORT INFORMATION
  Report Type: Spontaneous
  Country: BE (occurrence: BE)
  Receive Date: 20210802
  Receipt Date: 20210802
  Transmission Date: 20211014
  Serious: No
  Sender: FDA-Public Use
  Company Number: BE-LUPIN PHARMACEUTICALS INC.-2021-13403

PATIENT
  Sex: Male

DRUGS (1)
  1. NYSTATIN. [Suspect]
     Active Substance: NYSTATIN
     Indication: ANTIFUNGAL TREATMENT
     Dosage: UNK,CREAM
     Route: 061

REACTIONS (1)
  - Dermatitis contact [Unknown]

NARRATIVE: CASE EVENT DATE: 2011
